FAERS Safety Report 25289807 (Version 2)
Quarter: 2025Q2

REPORT INFORMATION
  Report Type: Spontaneous
  Country: US (occurrence: US)
  Receive Date: 20250509
  Receipt Date: 20250523
  Transmission Date: 20250717
  Serious: Yes (Hospitalization, Other)
  Sender: MERCK SHARP & DOHME LLC
  Company Number: US-009507513-2282486

PATIENT
  Sex: Male
  Weight: 85 kg

DRUGS (15)
  1. SOTATERCEPT [Suspect]
     Active Substance: SOTATERCEPT
     Dates: start: 2024
  2. SOTATERCEPT [Suspect]
     Active Substance: SOTATERCEPT
     Dates: start: 2025
  3. SOTATERCEPT [Suspect]
     Active Substance: SOTATERCEPT
  4. SOTATERCEPT [Suspect]
     Active Substance: SOTATERCEPT
  5. REMODULIN [Suspect]
     Active Substance: TREPROSTINIL
     Indication: Pulmonary arterial hypertension
     Route: 041
     Dates: start: 20221206
  6. REMODULIN [Suspect]
     Active Substance: TREPROSTINIL
     Indication: Pulmonary arterial hypertension
     Route: 041
  7. REMODULIN [Suspect]
     Active Substance: TREPROSTINIL
     Indication: Pulmonary arterial hypertension
     Route: 041
     Dates: start: 20221206
  8. OMEPRAZOLE [Concomitant]
     Active Substance: OMEPRAZOLE
  9. FOLIC ACID [Concomitant]
     Active Substance: FOLIC ACID
  10. VITAMIN D3 [Concomitant]
     Active Substance: CHOLECALCIFEROL
  11. TADALAFIL [Concomitant]
     Active Substance: TADALAFIL
  12. LETAIRIS [Concomitant]
     Active Substance: AMBRISENTAN
  13. VITAMIN B12 [Concomitant]
     Active Substance: CYANOCOBALAMIN
  14. IRON [Concomitant]
     Active Substance: IRON
  15. ONDANSETRON [Concomitant]
     Active Substance: ONDANSETRON

REACTIONS (6)
  - Blood loss anaemia [Unknown]
  - Graves^ disease [Unknown]
  - Platelet count decreased [Unknown]
  - Illness [Not Recovered/Not Resolved]
  - Haemoglobin increased [Recovering/Resolving]
  - Weight decreased [Unknown]

NARRATIVE: CASE EVENT DATE: 20240101
